FAERS Safety Report 6184022-9 (Version None)
Quarter: 2009Q2

REPORT INFORMATION
  Report Type: 
  Country: None (occurrence: None)
  Receive Date: 20090508
  Receipt Date: 20090505
  Transmission Date: 20091009
  Serious: No
  Sender: FDA-Public Use
  Company Number: US-B.I. PHARMACEUTICALS,INC./RIDGEFIELD-2009-BP-05640BP

PATIENT
  Sex: Female

DRUGS (2)
  1. ZANTAC 150 [Suspect]
     Indication: DYSPEPSIA
     Route: 048
     Dates: start: 20080101
  2. LORAZEPAM [Concomitant]
     Indication: ANXIETY
     Dosage: .5MG
     Route: 048
     Dates: start: 20080101

REACTIONS (2)
  - OESOPHAGEAL PAIN [None]
  - RASH GENERALISED [None]
